FAERS Safety Report 7101259-2 (Version None)
Quarter: 2010Q4

REPORT INFORMATION
  Report Type: 
  Country: None (occurrence: None)
  Receive Date: 20101115
  Receipt Date: 20100211
  Transmission Date: 20110411
  Serious: Yes (Other)
  Sender: FDA-Public Use
  Company Number: US-PFIZER INC-2010019505

PATIENT
  Sex: Female
  Weight: 72.562 kg

DRUGS (1)
  1. CLINDAMYCIN PHOSPHATE [Suspect]
     Indication: TOOTH ABSCESS
     Dosage: 150 MG, UNK
     Dates: start: 20100130, end: 20100130

REACTIONS (2)
  - ANAPHYLACTIC SHOCK [None]
  - SWOLLEN TONGUE [None]
